FAERS Safety Report 18081189 (Version 3)
Quarter: 2020Q3

REPORT INFORMATION
  Report Type: Spontaneous
  Country: CA (occurrence: CA)
  Receive Date: 20200728
  Receipt Date: 20200810
  Transmission Date: 20201103
  Serious: Yes (Hospitalization, Other)
  Sender: FDA-Public Use
  Company Number: CA-MYLANLABS-2020M1067417

PATIENT
  Age: 27 Month
  Sex: Male
  Weight: 15.7 kg

DRUGS (5)
  1. CLOBAZAM. [Concomitant]
     Active Substance: CLOBAZAM
     Indication: EPILEPSY
     Dosage: UNK
  2. VALPROIC ACID. [Suspect]
     Active Substance: VALPROIC ACID
     Indication: EPILEPSY
     Dosage: 250 MILLIGRAM, BID ((38 MG/KG, QD; SLOWLY INCREASED)
     Route: 065
  3. VALPROIC ACID. [Suspect]
     Active Substance: VALPROIC ACID
     Indication: TUBEROUS SCLEROSIS COMPLEX
     Dosage: 300 MG, BID (38 MG/KG, QD; SLOWLY INCREASED);
     Route: 065
  4. LEVETIRACETAM. [Concomitant]
     Active Substance: LEVETIRACETAM
     Indication: EPILEPSY
     Dosage: UNK
  5. FELBAMATE. [Concomitant]
     Active Substance: FELBAMATE
     Indication: EPILEPSY
     Dosage: UNK

REACTIONS (14)
  - Coagulopathy [Recovered/Resolved]
  - Status epilepticus [Recovered/Resolved]
  - Toxicity to various agents [Recovered/Resolved]
  - Sepsis [Recovered/Resolved]
  - Abdominal tenderness [Recovered/Resolved]
  - Somnolence [Recovered/Resolved]
  - Lethargy [Recovered/Resolved]
  - Myoclonus [Recovered/Resolved]
  - Pancreatitis [Recovered/Resolved]
  - Depressed level of consciousness [Recovered/Resolved]
  - International normalised ratio increased [Recovered/Resolved]
  - Leukocytosis [Recovered/Resolved]
  - Postictal state [Recovered/Resolved]
  - Thrombocytopenia [Recovered/Resolved]
